FAERS Safety Report 14921823 (Version 1)
Quarter: 2018Q2

REPORT INFORMATION
  Report Type: Spontaneous
  Country: GR (occurrence: GR)
  Receive Date: 20180522
  Receipt Date: 20180522
  Transmission Date: 20180711
  Serious: Yes (Other)
  Sender: FDA-Public Use
  Company Number: GR-ALVOGEN-2018-ALVOGEN-096198

PATIENT
  Age: 58 Year
  Sex: Female

DRUGS (6)
  1. BIOFENAC (ACECLOFENAC) [Interacting]
     Active Substance: ACECLOFENAC
     Indication: MYALGIA
     Route: 065
     Dates: start: 20180312
  2. NORGESIC [Interacting]
     Active Substance: ASPIRIN\CAFFEINE\ORPHENADRINE CITRATE
     Indication: MYALGIA
     Route: 065
     Dates: start: 20180312
  3. AMOXIL [Interacting]
     Active Substance: AMOXICILLIN
     Indication: TOOTH ABSCESS
     Route: 065
     Dates: start: 20180312, end: 20180318
  4. LONARID [Interacting]
     Active Substance: ACETAMINOPHEN\AMOBARBITAL\CAFFEINE\CODEINE PHOSPHATE
     Indication: HEADACHE
     Route: 048
     Dates: start: 20180314
  5. TENORMIN [Suspect]
     Active Substance: ATENOLOL
     Indication: TACHYCARDIA
     Route: 065
  6. ZOVIRAX [Interacting]
     Active Substance: ACYCLOVIR
     Indication: HERPES VIRUS INFECTION
     Route: 065
     Dates: start: 20180310, end: 20180320

REACTIONS (6)
  - Drug interaction [Unknown]
  - Vision blurred [Unknown]
  - Vertigo [Unknown]
  - Vitreous detachment [Unknown]
  - Hypoaesthesia [None]
  - Hypoaesthesia [Unknown]

NARRATIVE: CASE EVENT DATE: 20180314
